FAERS Safety Report 9143607 (Version 1)
Quarter: 2013Q1

REPORT INFORMATION
  Report Type: Spontaneous
  Country: GB (occurrence: GB)
  Receive Date: 20130306
  Receipt Date: 20130306
  Transmission Date: 20140127
  Serious: Yes (Other)
  Sender: FDA-Public Use
  Company Number: GB-TEVA-388352ISR

PATIENT
  Sex: Male

DRUGS (3)
  1. METHOTREXATE [Suspect]
  2. STELARA [Interacting]
     Indication: PSORIASIS
  3. STELARA [Interacting]
     Indication: PSORIASIS

REACTIONS (4)
  - Psoriasis [Unknown]
  - Blood urine present [Unknown]
  - Haematochezia [Unknown]
  - Drug interaction [Unknown]
